FAERS Safety Report 4375354-5 (Version None)
Quarter: 2004Q2

REPORT INFORMATION
  Report Type: 
  Country: None (occurrence: None)
  Receive Date: 20040607
  Receipt Date: 20040520
  Transmission Date: 20050107
  Serious: Yes (Hospitalization)
  Sender: FDA-Public Use
  Company Number: I04-341-079

PATIENT
  Age: 55 Year
  Sex: Male
  Weight: 91 kg

DRUGS (13)
  1. VELCADE (VELCADE) VELCADE (BORTEZOMIB) [Suspect]
     Indication: MULTIPLE MYELOMA
     Dosage: SUBCUTANEOUS
     Route: 058
     Dates: start: 20040331, end: 20040513
  2. DEXAMETHASONE [Suspect]
     Indication: MULTIPLE MYELOMA
     Dosage: 40.00 MG, ORAL
     Route: 048
  3. THALIDOMIDE (THALIDOMIDE) [Suspect]
     Indication: MULTIPLE MYELOMA
     Dosage: 200.00 MG, ORAL
     Route: 048
  4. CISPLATIN [Suspect]
     Indication: MULTIPLE MYELOMA
     Dosage: 20.00 MG,
  5. ADRIAMYCIN PFS [Suspect]
     Indication: MULTIPLE MYELOMA
     Dosage: 20.00 MG,
  6. CYCLOPHOSPHAMIDE [Suspect]
     Indication: MULTIPLE MYELOMA
     Dosage: 788.00 MG,
  7. ETOPOSIDE [Suspect]
     Indication: MULTIPLE MYELOMA
     Dosage: 79.00 MG, INTRAVENOUS
     Route: 042
  8. DIFLUCAN (FUCONAZOLE) [Concomitant]
  9. ACYCLOVIR [Concomitant]
  10. TEQUIN [Concomitant]
  11. ZANTAC [Concomitant]
  12. LOVENOX [Concomitant]
  13. POCRIT (ERYTHROPOIETIN) [Concomitant]

REACTIONS (7)
  - ATRIOVENTRICULAR BLOCK [None]
  - BLOOD PRESSURE DECREASED [None]
  - CHEST DISCOMFORT [None]
  - DIZZINESS [None]
  - DRUG EFFECT DECREASED [None]
  - HYPERVENTILATION [None]
  - MYOCARDIAL INFARCTION [None]
